FAERS Safety Report 11693967 (Version 3)
Quarter: 2016Q1

REPORT INFORMATION
  Report Type: Report from Study
  Country: BR (occurrence: BR)
  Receive Date: 20151103
  Receipt Date: 20160104
  Transmission Date: 20160525
  Serious: Yes (Death, Hospitalization, Other)
  Sender: FDA-Public Use
  Company Number: BR-BAYER-2015-450359

PATIENT
  Age: 58 Year
  Sex: Male
  Weight: 50 kg

DRUGS (2)
  1. RAPAMUNE [Concomitant]
     Active Substance: SIROLIMUS
     Indication: IMMUNOSUPPRESSANT DRUG THERAPY
     Dosage: 2 DF, QD
     Route: 048
     Dates: start: 201508
  2. NEXAVAR [Suspect]
     Active Substance: SORAFENIB
     Indication: HEPATIC CANCER
     Dosage: 400 MG, BID
     Route: 048
     Dates: start: 20150923, end: 2015

REACTIONS (16)
  - Hepatic enzyme abnormal [None]
  - Hepatitis C [Fatal]
  - Rash macular [Not Recovered/Not Resolved]
  - Dry skin [Not Recovered/Not Resolved]
  - Hepatic cancer [Fatal]
  - Dehydration [Not Recovered/Not Resolved]
  - Peripheral swelling [Not Recovered/Not Resolved]
  - Dry mouth [Not Recovered/Not Resolved]
  - Malnutrition [Not Recovered/Not Resolved]
  - Decreased appetite [Not Recovered/Not Resolved]
  - Pain in extremity [Not Recovered/Not Resolved]
  - Dysphagia [Not Recovered/Not Resolved]
  - Hepatic cirrhosis [Fatal]
  - Elephantiasis [Not Recovered/Not Resolved]
  - Thrombosis [Not Recovered/Not Resolved]
  - Skin exfoliation [Not Recovered/Not Resolved]

NARRATIVE: CASE EVENT DATE: 2015
